FAERS Safety Report 12190526 (Version 1)
Quarter: 2016Q1

REPORT INFORMATION
  Report Type: Spontaneous
  Country: US (occurrence: US)
  Receive Date: 20160318
  Receipt Date: 20160318
  Transmission Date: 20160526
  Serious: No
  Sender: FDA-Public Use
  Company Number: US-ZYDUS-008709

PATIENT
  Sex: Female

DRUGS (3)
  1. LAMOTRIGINE. [Suspect]
     Active Substance: LAMOTRIGINE
     Indication: BIPOLAR DISORDER
     Dates: start: 2015, end: 2015
  2. MEDROXYPROGESTERONE [Concomitant]
     Active Substance: MEDROXYPROGESTERONE
     Dates: start: 2009
  3. PHENTERMINE/PHENTERMINE HYDROCHLORIDE/PHENTERMINE RESIN [Concomitant]
     Dates: start: 2009

REACTIONS (3)
  - Pruritus [Unknown]
  - Face oedema [Unknown]
  - Panic attack [Unknown]

NARRATIVE: CASE EVENT DATE: 2015
